FAERS Safety Report 13852598 (Version 1)
Quarter: 2017Q3

REPORT INFORMATION
  Report Type: Spontaneous
  Country: US (occurrence: US)
  Receive Date: 20170809
  Receipt Date: 20170809
  Transmission Date: 20171127
  Serious: No
  Sender: FDA-Public Use
  Company Number: US-ROCHE-634696

PATIENT
  Age: 63 Year
  Sex: Female
  Weight: 49.9 kg

DRUGS (1)
  1. BONIVA [Suspect]
     Active Substance: IBANDRONATE SODIUM
     Indication: OSTEOPOROSIS
     Dosage: OTHER INDICATION OSTEOPENIA
     Route: 048
     Dates: start: 20090519, end: 20090519

REACTIONS (6)
  - Bone pain [Unknown]
  - Chest pain [Unknown]
  - Diarrhoea [Unknown]
  - Pain [Unknown]
  - Pain [Not Recovered/Not Resolved]
  - Bone pain [Recovering/Resolving]

NARRATIVE: CASE EVENT DATE: 20090520
